FAERS Safety Report 6727850-0 (Version None)
Quarter: 2010Q2

REPORT INFORMATION
  Report Type: 
  Country: None (occurrence: None)
  Receive Date: 20100512
  Receipt Date: 20100506
  Transmission Date: 20101027
  Serious: Yes (Other)
  Sender: FDA-Public Use
  Company Number: A0858520A

PATIENT
  Age: 52 Year
  Sex: Male

DRUGS (2)
  1. ASPIRIN + CAFFEINE + SALICYLAMIDE POWDER [Suspect]
     Indication: DRUG USE FOR UNKNOWN INDICATION
  2. ASPIRIN + CAFFEINE + SALICYLAMIDE POWDER [Suspect]
     Indication: DRUG USE FOR UNKNOWN INDICATION

REACTIONS (2)
  - DRUG INEFFECTIVE [None]
  - GASTRIC ULCER [None]
